FAERS Safety Report 5107148-7 (Version None)
Quarter: 2006Q3

REPORT INFORMATION
  Report Type: 
  Country: None (occurrence: None)
  Receive Date: 20060913
  Receipt Date: 20060824
  Transmission Date: 20061208
  Serious: Yes (Death, Hospitalization)
  Sender: FDA-Public Use
  Company Number: US200608005391

PATIENT
  Sex: Male

DRUGS (2)
  1. FORTEO [Suspect]
     Indication: OSTEOPOROSIS
     Dates: start: 20040101
  2. FORTEO PEN (FORTEO PEN) [Concomitant]

REACTIONS (4)
  - GASTRIC CANCER [None]
  - LYMPHOMA [None]
  - MALAISE [None]
  - OESOPHAGEAL CARCINOMA [None]
